FAERS Safety Report 6522125-7 (Version None)
Quarter: 2009Q4

REPORT INFORMATION
  Report Type: 
  Country: None (occurrence: None)
  Receive Date: 20091229
  Receipt Date: 20091229
  Transmission Date: 20100525
  Serious: Yes (Hospitalization)
  Sender: FDA-Public Use
  Company Number: None

PATIENT
  Sex: Female
  Weight: 62.1 kg

DRUGS (6)
  1. PACLITAXEL [Suspect]
     Indication: OVARIAN CANCER
     Dosage: IV
     Route: 042
     Dates: start: 20090802, end: 20091008
  2. CARBOPLATIN [Suspect]
     Indication: OVARIAN CANCER
     Dosage: IV
     Route: 042
     Dates: start: 20090802, end: 20091008
  3. ARANESP [Concomitant]
  4. LISINOPRIL [Concomitant]
  5. NEULASTA [Concomitant]
  6. FERROUS SULFATE TAB [Concomitant]

REACTIONS (4)
  - HAEMOGLOBIN DECREASED [None]
  - PARAESTHESIA [None]
  - SYNCOPE [None]
  - WHITE BLOOD CELL COUNT INCREASED [None]
